FAERS Safety Report 10044673 (Version 1)
Quarter: 2014Q1

REPORT INFORMATION
  Report Type: Spontaneous
  Country: IL (occurrence: IL)
  Receive Date: 20140328
  Receipt Date: 20140328
  Transmission Date: 20141002
  Serious: Yes (Other)
  Sender: FDA-Public Use
  Company Number: IL-PFIZER INC-2014086737

PATIENT
  Sex: Male

DRUGS (1)
  1. SOMAVERT [Suspect]

REACTIONS (1)
  - Renal failure [Unknown]
